FAERS Safety Report 20378804 (Version 1)
Quarter: 2022Q1

REPORT INFORMATION
  Report Type: Spontaneous
  Country: US (occurrence: US)
  Receive Date: 20220126
  Receipt Date: 20220126
  Transmission Date: 20220424
  Serious: Yes (Death, Other)
  Sender: FDA-Public Use
  Company Number: US-PFIZER INC-202200063809

PATIENT
  Age: 79 Year
  Sex: Female
  Weight: 76.2 kg

DRUGS (1)
  1. IBRANCE [Suspect]
     Active Substance: PALBOCICLIB
     Dosage: 125 MG, CYCLIC (21 DAYS ON 7 DAYS)
     Dates: start: 20200101

REACTIONS (5)
  - Pulmonary fibrosis [Fatal]
  - Interstitial lung disease [Unknown]
  - Internal haemorrhage [Unknown]
  - Dyspnoea [Unknown]
  - Depressed mood [Unknown]

NARRATIVE: CASE EVENT DATE: 20200101
